FAERS Safety Report 8034496-3 (Version None)
Quarter: 2012Q1

REPORT INFORMATION
  Report Type: 
  Country: None (occurrence: None)
  Receive Date: 20120110
  Receipt Date: 20120104
  Transmission Date: 20120608
  Serious: Yes (Hospitalization, Other)
  Sender: FDA-Public Use
  Company Number: DE-PFIZER INC-2009181086

PATIENT
  Age: 69 Year
  Sex: Female
  Weight: 62 kg

DRUGS (6)
  1. METOPROLOL SUCCINATE [Interacting]
     Dosage: ^95-0-47.5 MG^ DAILY
     Route: 048
     Dates: end: 20090101
  2. DOXAZOSIN MESYLATE [Suspect]
     Indication: HYPERTENSION
     Dosage: 2 MG, DAILY
     Route: 048
  3. AMLODIPINE/VALSARTAN [Interacting]
     Indication: HYPERTENSION
     Dosage: 1 DF (WITH 10 MG AMLODIPINE AND 160 MG VALSARTAN), DAILY
     Route: 048
  4. METOPROLOL SUCCINATE [Interacting]
     Indication: HYPERTENSION
     Dosage: 95 MG TAKEN IN THE MORNING AND 47.5 MG TAKEN IN THE EVENING
     Route: 048
     Dates: end: 20090101
  5. RAMIPRIL [Interacting]
     Indication: HYPERTENSION
     Dosage: 5 MG, 2X/DAY
     Route: 048
  6. ACETYLSALICYLIC ACID [Concomitant]
     Indication: PERIPHERAL ARTERIAL OCCLUSIVE DISEASE
     Dosage: 100 MG, 1X/DAY
     Route: 048

REACTIONS (9)
  - DRUG INTERACTION [None]
  - HYPOTENSION [None]
  - SYSTOLIC HYPERTENSION [None]
  - SINUS BRADYCARDIA [None]
  - AORTIC VALVE STENOSIS [None]
  - MITRAL VALVE INCOMPETENCE [None]
  - AORTIC VALVE SCLEROSIS [None]
  - AORTIC VALVE INCOMPETENCE [None]
  - SYNCOPE [None]
